FAERS Safety Report 6682923-6 (Version None)
Quarter: 2010Q2

REPORT INFORMATION
  Report Type: 
  Country: None (occurrence: None)
  Receive Date: 20100415
  Receipt Date: 20100408
  Transmission Date: 20101027
  Serious: Yes (Other)
  Sender: FDA-Public Use
  Company Number: B0647586A

PATIENT
  Age: 61 Year
  Sex: Male
  Weight: 70 kg

DRUGS (1)
  1. ZINNAT [Suspect]
     Indication: SUPERINFECTION
     Dosage: 500MG TWICE PER DAY
     Dates: start: 20100316, end: 20100317

REACTIONS (2)
  - DELIRIUM [None]
  - RESTLESSNESS [None]
